FAERS Safety Report 12538503 (Version 6)
Quarter: 2017Q1

REPORT INFORMATION
  Report Type: Spontaneous
  Country: US (occurrence: US)
  Receive Date: 20160708
  Receipt Date: 20170123
  Transmission Date: 20170428
  Serious: No
  Sender: FDA-Public Use
  Company Number: PHHY2016US091230

PATIENT
  Sex: Female
  Weight: 53.52 kg

DRUGS (2)
  1. ZOFRAN [Suspect]
     Active Substance: ONDANSETRON HYDROCHLORIDE
     Indication: VOMITING IN PREGNANCY
     Route: 065
     Dates: start: 199711
  2. ZOFRAN [Suspect]
     Active Substance: ONDANSETRON HYDROCHLORIDE
     Dosage: 8 MG, QD
     Route: 065
     Dates: start: 199712, end: 199806

REACTIONS (4)
  - Product use issue [Unknown]
  - Anxiety [Unknown]
  - Pain [Unknown]
  - Maternal exposure during pregnancy [Unknown]
